FAERS Safety Report 5649761-4 (Version None)
Quarter: 2008Q1

REPORT INFORMATION
  Report Type: 
  Country: None (occurrence: None)
  Receive Date: 20080304
  Receipt Date: 20080221
  Transmission Date: 20080703
  Serious: Yes (Hospitalization, Other)
  Sender: FDA-Public Use
  Company Number: US-PFIZER INC-2008017403

PATIENT
  Age: 62 Year
  Sex: Male

DRUGS (8)
  1. LITHIUM CARBONATE [Suspect]
     Indication: BIPOLAR DISORDER
  2. LISINOPRIL [Concomitant]
  3. ATENOLOL [Concomitant]
  4. GEMFIBROZIL [Concomitant]
  5. HALOPERIDOL [Concomitant]
  6. QUETIAPINE FUMARATE [Concomitant]
  7. METFORMIN HCL [Concomitant]
  8. BUPROPION HCL [Concomitant]

REACTIONS (3)
  - NEPHROGENIC DIABETES INSIPIDUS [None]
  - NEPHROTIC SYNDROME [None]
  - RENAL FAILURE CHRONIC [None]
